FAERS Safety Report 9217211 (Version 1)
Quarter: 2013Q2

REPORT INFORMATION
  Report Type: Spontaneous
  Country: US (occurrence: None)
  Receive Date: 20130405
  Receipt Date: 20130405
  Transmission Date: 20140414
  Serious: Yes (Hospitalization)
  Sender: FDA-Public Use
  Company Number: None

PATIENT
  Age: 52 Year
  Sex: Male
  Weight: 99 kg

DRUGS (1)
  1. ZOLPIDEM [Suspect]
     Dosage: MG PO
     Dates: start: 20121115

REACTIONS (6)
  - Restlessness [None]
  - Speech disorder [None]
  - Disorientation [None]
  - Abnormal behaviour [None]
  - Accidental overdose [None]
  - Delirium [None]
